FAERS Safety Report 6776730-3 (Version None)
Quarter: 2010Q2

REPORT INFORMATION
  Report Type: 
  Country: None (occurrence: None)
  Receive Date: 20100617
  Receipt Date: 20100617
  Transmission Date: 20101027
  Serious: No
  Sender: FDA-Public Use
  Company Number: None

PATIENT
  Age: 66 Year
  Sex: Female
  Weight: 77.1115 kg

DRUGS (2)
  1. NIASPAN [Suspect]
     Indication: BLOOD CHOLESTEROL INCREASED
     Dosage: 1 X PER NIGHT BEFORE BEDTIME
     Dates: start: 20100616, end: 20100616
  2. NIASPAN [Suspect]
     Indication: BLOOD TRIGLYCERIDES INCREASED
     Dosage: 1 X PER NIGHT BEFORE BEDTIME
     Dates: start: 20100616, end: 20100616

REACTIONS (6)
  - ADVERSE REACTION [None]
  - FEELING HOT [None]
  - FLUSHING [None]
  - PRURITUS [None]
  - SUNBURN [None]
  - VASODILATATION [None]
